FAERS Safety Report 19165704 (Version 1)
Quarter: 2021Q2

REPORT INFORMATION
  Report Type: Spontaneous
  Country: CN (occurrence: CN)
  Receive Date: 20210422
  Receipt Date: 20210422
  Transmission Date: 20210717
  Serious: Yes (Other)
  Sender: FDA-Public Use
  Company Number: CN-ASTRAZENECA-2021A315757

PATIENT
  Age: 25773 Day
  Sex: Male
  Weight: 50 kg

DRUGS (2)
  1. BUDESONIDE. [Suspect]
     Active Substance: BUDESONIDE
     Indication: DYSPNOEA
     Route: 055
     Dates: start: 20210317, end: 20210318
  2. BUDESONIDE. [Suspect]
     Active Substance: BUDESONIDE
     Indication: ASPHYXIA
     Route: 055
     Dates: start: 20210317, end: 20210318

REACTIONS (1)
  - Palpitations [Recovering/Resolving]

NARRATIVE: CASE EVENT DATE: 20210317
